FAERS Safety Report 4497400-0 (Version None)
Quarter: 2004Q4

REPORT INFORMATION
  Report Type: 
  Country: None (occurrence: None)
  Receive Date: 20041110
  Receipt Date: 20040624
  Transmission Date: 20050328
  Serious: Yes (Hospitalization)
  Sender: FDA-Public Use
  Company Number: 200412228JP

PATIENT
  Age: 19 Year
  Sex: Female
  Weight: 57 kg

DRUGS (5)
  1. KETEK [Suspect]
     Indication: BRONCHITIS
     Route: 048
     Dates: start: 20040618, end: 20040619
  2. PL GRAN. [Suspect]
     Indication: BRONCHITIS
     Route: 048
     Dates: start: 20040618, end: 20040619
  3. ASGEN [Suspect]
     Indication: BRONCHITIS
     Route: 048
     Dates: start: 20040618, end: 20040619
  4. FLOMOX [Concomitant]
     Indication: BRONCHITIS
     Route: 048
     Dates: start: 20040617, end: 20040618
  5. PL GRAN. [Concomitant]
     Route: 048
     Dates: start: 20040617, end: 20040618

REACTIONS (6)
  - ERYTHEMA [None]
  - EYE OEDEMA [None]
  - FACE OEDEMA [None]
  - LYMPHADENITIS [None]
  - NASOPHARYNGITIS [None]
  - PYREXIA [None]
